FAERS Safety Report 10905827 (Version 1)
Quarter: 2015Q1

REPORT INFORMATION
  Report Type: Spontaneous
  Country: CA (occurrence: CA)
  Receive Date: 20150311
  Receipt Date: 20150311
  Transmission Date: 20150721
  Serious: Yes (Other)
  Sender: FDA-Public Use
  Company Number: CA-TEVA-546391USA

PATIENT
  Age: 38 Year
  Sex: Female
  Weight: 54.48 kg

DRUGS (1)
  1. PLAN B [Suspect]
     Active Substance: LEVONORGESTREL
     Indication: POST COITAL CONTRACEPTION
     Dosage: TWO TABLETS TOGETHER
     Dates: start: 20150103, end: 20150103

REACTIONS (2)
  - Haemorrhage [Unknown]
  - Nausea [Unknown]
